FAERS Safety Report 17580305 (Version 3)
Quarter: 2020Q2

REPORT INFORMATION
  Report Type: Spontaneous
  Country: ES (occurrence: ES)
  Receive Date: 20200325
  Receipt Date: 20200514
  Transmission Date: 20200713
  Serious: No
  Sender: FDA-Public Use
  Company Number: ES-BIOVITRUM-2020ES1341

PATIENT
  Age: 22 Year
  Sex: Female

DRUGS (2)
  1. ORFADIN [Suspect]
     Active Substance: NITISINONE
     Indication: TYROSINAEMIA
     Route: 048
  2. CARNITINE [Suspect]
     Active Substance: CARNITINE
     Indication: TYROSINAEMIA
     Route: 048

REACTIONS (2)
  - Volume blood decreased [Unknown]
  - Maternal exposure during pregnancy [Recovered/Resolved]

NARRATIVE: CASE EVENT DATE: 20200326
